FAERS Safety Report 4407449-1 (Version None)
Quarter: 2004Q3

REPORT INFORMATION
  Report Type: 
  Country: None (occurrence: None)
  Receive Date: 20040723
  Receipt Date: 20040723
  Transmission Date: 20050211
  Serious: Yes (Hospitalization)
  Sender: FDA-Public Use
  Company Number: None

PATIENT
  Age: 63 Year
  Sex: Female
  Weight: 88.905 kg

DRUGS (6)
  1. CYCLOPHOSPHAMIDE [Suspect]
     Indication: NON-HODGKIN'S LYMPHOMA
     Dosage: 750 MG/M2
     Dates: start: 20040618
  2. ADRIAMYCIN PFS [Suspect]
     Indication: NON-HODGKIN'S LYMPHOMA
     Dosage: 50 MG/M2
     Dates: start: 20040618
  3. VINCRISTINE [Concomitant]
  4. GEMCITABINE [Concomitant]
  5. PREDNISONE [Concomitant]
  6. NEULASTA [Concomitant]

REACTIONS (4)
  - DIAPHRAGMATIC PARALYSIS [None]
  - DYSPNOEA [None]
  - HAEMOGLOBIN ABNORMAL [None]
  - RESTRICTIVE PULMONARY DISEASE [None]
